FAERS Safety Report 24744318 (Version 2)
Quarter: 2024Q4

REPORT INFORMATION
  Report Type: Spontaneous
  Country: US (occurrence: US)
  Receive Date: 20241217
  Receipt Date: 20241227
  Transmission Date: 20250115
  Serious: No
  Sender: SANDOZ
  Company Number: US-SANDOZ-SDZ2024US102955

PATIENT
  Sex: Female
  Weight: 80 kg

DRUGS (5)
  1. MYCOPHENOLATE MOFETIL [Suspect]
     Active Substance: MYCOPHENOLATE MOFETIL
     Indication: Liver transplant
     Dosage: 250 MG, BID
     Route: 048
     Dates: start: 20240710, end: 20241110
  2. HUMALOG [Concomitant]
     Active Substance: INSULIN LISPRO
     Indication: Blood glucose normal
     Dosage: 6UNIT
     Route: 065
     Dates: start: 20240626
  3. LOVENOX [Concomitant]
     Active Substance: ENOXAPARIN SODIUM
     Indication: Anticoagulant therapy
     Dosage: 80 MG, Q12H
     Route: 065
     Dates: start: 20241118
  4. TACROLIMUS [Concomitant]
     Active Substance: TACROLIMUS
     Indication: Liver transplant
     Dosage: 3 MG, BID
     Route: 065
  5. VITAMIN D3 [Concomitant]
     Active Substance: CHOLECALCIFEROL
     Indication: Vitamin supplementation
     Dosage: 2000UNIT
     Route: 065

REACTIONS (1)
  - Exposure during pregnancy [Unknown]
